FAERS Safety Report 22174706 (Version 2)
Quarter: 2023Q2

REPORT INFORMATION
  Report Type: Spontaneous
  Country: JP (occurrence: JP)
  Receive Date: 20230405
  Receipt Date: 20230601
  Transmission Date: 20230722
  Serious: Yes (Other)
  Sender: FDA-Public Use
  Company Number: JP-NBI-BS202300054

PATIENT
  Age: 79 Year
  Sex: Male

DRUGS (2)
  1. DABIGATRAN ETEXILATE MESYLATE [Suspect]
     Active Substance: DABIGATRAN ETEXILATE MESYLATE
     Indication: Atrial fibrillation
     Route: 065
  2. ASPIRIN [Concomitant]
     Active Substance: ASPIRIN
     Indication: Product used for unknown indication
     Route: 065

REACTIONS (2)
  - Cerebral infarction [Unknown]
  - Gastrointestinal haemorrhage [Unknown]
